FAERS Safety Report 17798817 (Version 1)
Quarter: 2020Q2

REPORT INFORMATION
  Report Type: Spontaneous
  Country: US (occurrence: US)
  Receive Date: 20200518
  Receipt Date: 20200518
  Transmission Date: 20200714
  Serious: Yes (Hospitalization)
  Sender: FDA-Public Use
  Company Number: None

PATIENT
  Age: 61 Year
  Sex: Female

DRUGS (18)
  1. ATORVASTAIIN [Concomitant]
  2. INCRUSE ELLIPTA [Concomitant]
     Active Substance: UMECLIDINIUM BROMIDE
  3. METROPROL OL [Concomitant]
  4. ZOL PIDEM [Concomitant]
  5. ELIQUIS [Concomitant]
     Active Substance: APIXABAN
  6. DEXAMETHASONE. [Concomitant]
     Active Substance: DEXAMETHASONE
  7. DOCU SATE [Concomitant]
  8. GEMCITABINE. [Concomitant]
     Active Substance: GEMCITABINE
  9. TRAZODONE [Concomitant]
     Active Substance: TRAZODONE HYDROCHLORIDE
  10. SPIRONOLAC?TONE [Concomitant]
  11. CLOPIDEGREL [Concomitant]
  12. LATUDA [Concomitant]
     Active Substance: LURASIDONE HYDROCHLORIDE
  13. CAPTOPRIL. [Concomitant]
     Active Substance: CAPTOPRIL
  14. VOTRIENT [Suspect]
     Active Substance: PAZOPANIB HYDROCHLORIDE
     Indication: NEOPLASM
     Route: 048
  15. NEU LASTA [Concomitant]
     Dates: start: 20190228, end: 20191227
  16. ONDANSETRON [Concomitant]
     Active Substance: ONDANSETRON
  17. IAMOTN^GINE [Concomitant]
  18. ADVA IR [Concomitant]

REACTIONS (3)
  - Therapy interrupted [None]
  - Thrombosis [None]
  - Myocardial infarction [None]
